FAERS Safety Report 10912887 (Version 4)
Quarter: 2015Q2

REPORT INFORMATION
  Report Type: Spontaneous
  Country: US (occurrence: None)
  Receive Date: 20150310
  Receipt Date: 20150630
  Transmission Date: 20150821
  Serious: Yes (Other)
  Sender: FDA-Public Use
  Company Number: US-001571

PATIENT
  Sex: Female

DRUGS (7)
  1. OXYCODONE [Concomitant]
     Active Substance: OXYCODONE
  2. GATTEX [Suspect]
     Active Substance: TEDUGLUTIDE\WATER
     Indication: SHORT-BOWEL SYNDROME
     Dosage: (DF SUBCUTANEOUS)
     Route: 058
     Dates: start: 20141212, end: 20150201
  3. PEPCID [Concomitant]
     Active Substance: FAMOTIDINE
  4. SOLUTIONS FOR PARENTERAL NUTRITION [Concomitant]
     Active Substance: AMINO ACIDS\DEXTROSE\ELECTROLYTES NOS
  5. LEVOTHYROXIN [Concomitant]
     Active Substance: LEVOTHYROXINE
  6. DIGOXIN. [Concomitant]
     Active Substance: DIGOXIN
  7. TUDORZA PRESSAIR [Concomitant]
     Active Substance: ACLIDINIUM BROMIDE

REACTIONS (14)
  - Intestinal obstruction [None]
  - Diarrhoea [None]
  - Abdominal pain [None]
  - Abdominal distension [None]
  - Headache [None]
  - Flushing [None]
  - Abdominal pain upper [None]
  - Renal disorder [None]
  - Rash [None]
  - Nausea [None]
  - Decreased appetite [None]
  - Urticaria [None]
  - Drug dose omission [None]
  - Bowel movement irregularity [None]
